FAERS Safety Report 6584632-0 (Version None)
Quarter: 2010Q1

REPORT INFORMATION
  Report Type: 
  Country: None (occurrence: None)
  Receive Date: 20100217
  Receipt Date: 20100118
  Transmission Date: 20100710
  Serious: Yes (Other)
  Sender: FDA-Public Use
  Company Number: US-AMGEN-KDL386679

PATIENT
  Sex: Male
  Weight: 76.3 kg

DRUGS (8)
  1. PROCRIT [Suspect]
     Indication: RENAL FAILURE CHRONIC
  2. CENTRUM SILVER [Concomitant]
  3. ALLOPURINOL [Concomitant]
  4. VITAMIN E [Concomitant]
  5. BENICAR [Concomitant]
  6. NIFEDIPINE [Concomitant]
  7. METOPROLOL TARTRATE [Concomitant]
  8. ASPIRIN [Concomitant]

REACTIONS (4)
  - FATIGUE [None]
  - HAEMATOCRIT DECREASED [None]
  - HYPERGAMMAGLOBULINAEMIA BENIGN MONOCLONAL [None]
  - MULTIPLE MYELOMA [None]
